FAERS Safety Report 8144289-4 (Version None)
Quarter: 2012Q1

REPORT INFORMATION
  Report Type: 
  Country: None (occurrence: None)
  Receive Date: 20120217
  Receipt Date: 20120213
  Transmission Date: 20120608
  Serious: Yes (Disabling, Other)
  Sender: FDA-Public Use
  Company Number: US-JNJFOC-20120200813

PATIENT
  Age: 48 Year
  Sex: Female
  Weight: 90 kg

DRUGS (22)
  1. LOMOTIL [Suspect]
     Indication: CROHN'S DISEASE
     Route: 048
  2. METHOCARBAMOL [Suspect]
     Indication: MUSCLE SPASMS
     Route: 048
  3. ISOSORBIDE MONONITRATE [Suspect]
     Indication: CARDIAC DISORDER
     Route: 065
  4. FUROSEMIDE [Suspect]
     Indication: DIURETIC THERAPY
     Route: 048
  5. LANTUS [Suspect]
     Indication: DIABETES MELLITUS
     Dosage: 80 UNITS IN THE MORNING AND 90 UNITS IN THE NIGHT
     Route: 065
  6. NORVASC [Suspect]
     Indication: CARDIAC DISORDER
     Route: 048
  7. ATIVAN [Suspect]
     Indication: ANXIETY
     Route: 048
  8. SIMVASTATIN [Suspect]
     Indication: BLOOD CHOLESTEROL INCREASED
     Route: 048
  9. NORVASC [Suspect]
     Indication: LUNG DISORDER
     Route: 048
  10. DEPAKOTE [Suspect]
     Indication: CONVULSION
     Route: 048
  11. HUMULIN R [Suspect]
     Indication: DIABETES MELLITUS
     Route: 065
  12. GENERLAC [Suspect]
     Indication: CROHN'S DISEASE
     Route: 065
  13. NITROSTAT [Suspect]
     Indication: CHEST PAIN
     Route: 065
  14. DILANTIN [Suspect]
     Indication: CONVULSION
     Route: 048
  15. METHOCARBAMOL [Suspect]
     Indication: NEUROPATHY PERIPHERAL
     Route: 048
  16. ATENOLOL [Suspect]
     Indication: HYPERTENSION
     Route: 048
  17. AN UNKNOWN MEDICATION [Suspect]
     Indication: DEPRESSION
     Route: 065
  18. TYLENOL W/ CODEINE NO. 3 [Suspect]
     Indication: MIGRAINE
     Route: 065
  19. ASPIRIN [Suspect]
     Indication: CHEST PAIN
     Route: 065
  20. POTASSIUM CHLORIDE [Suspect]
     Indication: BLOOD POTASSIUM ABNORMAL
     Route: 065
  21. REMERON [Suspect]
     Indication: INSOMNIA
     Route: 048
  22. ZANTAC [Suspect]
     Indication: GASTROOESOPHAGEAL REFLUX DISEASE
     Route: 065

REACTIONS (4)
  - EMPHYSEMA [None]
  - CHRONIC OBSTRUCTIVE PULMONARY DISEASE [None]
  - BEDRIDDEN [None]
  - AMNESIA [None]
